FAERS Safety Report 9679113 (Version 2)
Quarter: 2013Q4

REPORT INFORMATION
  Report Type: Spontaneous
  Country: US (occurrence: US)
  Receive Date: 20131108
  Receipt Date: 20131218
  Transmission Date: 20140711
  Serious: Yes (Other)
  Sender: FDA-Public Use
  Company Number: US-PFIZER INC-2013315674

PATIENT
  Age: 58 Year
  Sex: Female
  Weight: 95.24 kg

DRUGS (1)
  1. DETROL LA [Suspect]
     Indication: URINARY INCONTINENCE
     Dosage: 4 MG, 1X/DAY
     Route: 048

REACTIONS (8)
  - Muscle rupture [Unknown]
  - Foot fracture [Unknown]
  - Upper limb fracture [Unknown]
  - Uterine disorder [Unknown]
  - Meniscus injury [Unknown]
  - Arthropathy [Unknown]
  - Fall [Unknown]
  - Upper limb fracture [Unknown]
